FAERS Safety Report 16150780 (Version 2)
Quarter: 2019Q2

REPORT INFORMATION
  Report Type: Spontaneous
  Country: US (occurrence: US)
  Receive Date: 20190402
  Receipt Date: 20190619
  Transmission Date: 20190711
  Serious: No
  Sender: FDA-Public Use
  Company Number: US-ELI_LILLY_AND_COMPANY-US201903008995

PATIENT
  Sex: Female
  Weight: 65.31 kg

DRUGS (3)
  1. EMGALITY [Suspect]
     Active Substance: GALCANEZUMAB-GNLM
     Dosage: 120 MG, MONTHLY (1/M)
     Route: 065
  2. EMGALITY [Suspect]
     Active Substance: GALCANEZUMAB-GNLM
     Indication: MIGRAINE
     Dosage: 120 MG, SINGLE
     Route: 058
     Dates: start: 20190111
  3. RELPAX [Concomitant]
     Active Substance: ELETRIPTAN HYDROBROMIDE
     Indication: MIGRAINE
     Dosage: UNK UNK, PRN
     Route: 065

REACTIONS (11)
  - Papule [Recovered/Resolved]
  - Injection site discolouration [Recovering/Resolving]
  - Injection site rash [Unknown]
  - Underdose [Recovered/Resolved]
  - Inappropriate schedule of product administration [Unknown]
  - Injection site swelling [Recovering/Resolving]
  - Injection site urticaria [Recovering/Resolving]
  - Injection site erythema [Recovering/Resolving]
  - Injection site pruritus [Recovering/Resolving]
  - Erythema [Recovered/Resolved]
  - Injection site warmth [Recovering/Resolving]

NARRATIVE: CASE EVENT DATE: 20190111
